FAERS Safety Report 4635045-X (Version None)
Quarter: 2005Q2

REPORT INFORMATION
  Report Type: 
  Country: None (occurrence: None)
  Receive Date: 20050411
  Receipt Date: 20050404
  Transmission Date: 20051028
  Serious: Yes (Other)
  Sender: FDA-Public Use
  Company Number: 2005-03-1055

PATIENT
  Age: 50 Year
  Sex: Female
  Weight: 69 kg

DRUGS (2)
  1. INTRON A [Suspect]
     Indication: MALIGNANT MELANOMA
     Dosage: 34 MIU 5XWK INTRAVENOUS
     Route: 042
     Dates: start: 20050221, end: 20050225
  2. TYLENOL [Concomitant]

REACTIONS (3)
  - COLITIS [None]
  - CROHN'S DISEASE [None]
  - RECTAL HAEMORRHAGE [None]
